FAERS Safety Report 18038553 (Version 4)
Quarter: 2020Q3

REPORT INFORMATION
  Report Type: Spontaneous
  Country: US (occurrence: US)
  Receive Date: 20200717
  Receipt Date: 20200922
  Transmission Date: 20201103
  Serious: Yes (Other)
  Sender: FDA-Public Use
  Company Number: US-PFIZER INC-2020272845

PATIENT
  Age: 81 Year
  Sex: Female
  Weight: 45.81 kg

DRUGS (14)
  1. TYVASO [Suspect]
     Active Substance: TREPROSTINIL
     Dosage: UNK
     Route: 055
  2. SILDENAFIL CITRATE. [Suspect]
     Active Substance: SILDENAFIL CITRATE
     Dosage: UNK
  3. TYVASO [Suspect]
     Active Substance: TREPROSTINIL
     Indication: PULMONARY ARTERIAL HYPERTENSION
     Dosage: 18?54 ?G, (3?9 BREATHS) FOUR TIMES A DAY
     Route: 055
     Dates: start: 20200709
  4. TYVASO [Suspect]
     Active Substance: TREPROSTINIL
     Dosage: 18 UG
     Route: 055
     Dates: start: 202007
  5. TYVASO [Suspect]
     Active Substance: TREPROSTINIL
     Dosage: 18?54 ?G (3?9 BREATHS) FOUR TIMES A DAY
     Route: 055
  6. ZOLOFT [Suspect]
     Active Substance: SERTRALINE HYDROCHLORIDE
     Dosage: UNK
  7. TYVASO [Suspect]
     Active Substance: TREPROSTINIL
     Dosage: 18 UG, 4X/DAY
     Route: 055
     Dates: start: 202007
  8. TYVASO [Suspect]
     Active Substance: TREPROSTINIL
     Dosage: UNK (INCREASED)
     Route: 055
  9. TYVASO [Suspect]
     Active Substance: TREPROSTINIL
     Dosage: 42 UG
     Route: 055
     Dates: start: 20200726
  10. TYVASO [Suspect]
     Active Substance: TREPROSTINIL
     Dosage: 54 UG
     Route: 055
     Dates: start: 20200801
  11. TYVASO [Suspect]
     Active Substance: TREPROSTINIL
     Dosage: 30 UG, 4X/DAY (5 BREATHS)
     Route: 055
     Dates: start: 20200719
  12. ZOLOFT [Suspect]
     Active Substance: SERTRALINE HYDROCHLORIDE
     Dosage: 100 MG, DAILY
  13. ZOLOFT [Suspect]
     Active Substance: SERTRALINE HYDROCHLORIDE
     Dosage: 100 MG, 1X/DAY (100 MG, QD (ONCE A DAY))
  14. TYVASO [Suspect]
     Active Substance: TREPROSTINIL
     Dosage: 36 UG (6 BREATHS)
     Route: 055
     Dates: start: 20200714

REACTIONS (17)
  - Oxygen saturation decreased [Recovered/Resolved]
  - Nocturia [Recovered/Resolved]
  - Dizziness [Recovering/Resolving]
  - Tremor [Recovered/Resolved]
  - Fatigue [Not Recovered/Not Resolved]
  - Headache [Recovered/Resolved]
  - Dyspnoea [Recovering/Resolving]
  - Palpitations [Recovering/Resolving]
  - Weight increased [Recovered/Resolved]
  - Pulmonary arterial hypertension [Unknown]
  - Fluid retention [Unknown]
  - Oropharyngeal pain [Not Recovered/Not Resolved]
  - Condition aggravated [Unknown]
  - Heart rate increased [Recovered/Resolved]
  - Slow speech [Not Recovered/Not Resolved]
  - Cough [Unknown]
  - Peripheral swelling [Recovered/Resolved]

NARRATIVE: CASE EVENT DATE: 2020
